FAERS Safety Report 13669049 (Version 2)
Quarter: 2017Q2

REPORT INFORMATION
  Report Type: Spontaneous
  Country: JP (occurrence: JP)
  Receive Date: 20170620
  Receipt Date: 20170621
  Transmission Date: 20170830
  Serious: Yes (Hospitalization)
  Sender: FDA-Public Use
  Company Number: JP-PFIZER INC-2017261446

PATIENT
  Age: 80 Year
  Sex: Female
  Weight: 42.3 kg

DRUGS (7)
  1. GLICLAZIDE [Concomitant]
     Active Substance: GLICLAZIDE
     Indication: TYPE 2 DIABETES MELLITUS
     Dosage: 20 MG, UNK
  2. SITAGLIPTIN [Concomitant]
     Active Substance: SITAGLIPTIN
     Indication: TYPE 2 DIABETES MELLITUS
     Dosage: 50 MG, UNK
  3. DOGMATYL [Suspect]
     Active Substance: SULPIRIDE
     Indication: DEPRESSION
     Dosage: 50 MG, UNK
     Route: 048
  4. LEVEMIR [Concomitant]
     Active Substance: INSULIN DETEMIR
     Indication: TYPE 2 DIABETES MELLITUS
     Dosage: 16 UNITS IN THE MORNING
  5. GABAPEN [Suspect]
     Active Substance: GABAPENTIN
  6. TEGRETOL [Suspect]
     Active Substance: CARBAMAZEPINE
     Indication: TRIGEMINAL NEURALGIA
     Dosage: 100 MG, UNK
     Route: 048
  7. TRAMAL [Concomitant]
     Active Substance: TRAMADOL

REACTIONS (3)
  - Altered state of consciousness [Recovered/Resolved]
  - Condition aggravated [Unknown]
  - Dizziness [Unknown]
